FAERS Safety Report 24370657 (Version 1)
Quarter: 2024Q3

REPORT INFORMATION
  Report Type: Spontaneous
  Country: US (occurrence: US)
  Receive Date: 20240927
  Receipt Date: 20240927
  Transmission Date: 20241016
  Serious: No
  Sender: RECKITT BENCKISER
  Company Number: US-INDIVIOR US-INDV-141725-2023

PATIENT
  Sex: Female

DRUGS (2)
  1. PERSERIS [Suspect]
     Active Substance: RISPERIDONE
     Indication: Schizophrenia
     Dosage: 90 MILLIGRAM, QMO
     Route: 058
     Dates: start: 20231018
  2. PERSERIS [Suspect]
     Active Substance: RISPERIDONE

REACTIONS (1)
  - Drug effect less than expected [Not Recovered/Not Resolved]

NARRATIVE: CASE EVENT DATE: 20230101
